FAERS Safety Report 6366699-8 (Version None)
Quarter: 2009Q3

REPORT INFORMATION
  Report Type: 
  Country: None (occurrence: None)
  Receive Date: 20090915
  Receipt Date: 20090903
  Transmission Date: 20100115
  Serious: Yes (Hospitalization)
  Sender: FDA-Public Use
  Company Number: 2009-02610

PATIENT
  Age: 75 Year
  Sex: Female
  Weight: 36 kg

DRUGS (17)
  1. VELCADE [Suspect]
     Indication: MULTIPLE MYELOMA
     Dosage: 1.7 MG, INTRAVENOUS
     Route: 042
     Dates: start: 20090602, end: 20090609
  2. PAXIL [Suspect]
     Indication: SCHIZOPHRENIA
     Dosage: 1 DF, ORAL
     Route: 048
     Dates: end: 20090614
  3. DECADRON [Suspect]
     Indication: MULTIPLE MYELOMA
     Dosage: 20 MG, INTRAVENOUS
     Route: 042
     Dates: start: 20090602, end: 20090610
  4. VIT K CAP [Concomitant]
  5. DOGMATYL (SULPIRIDE) [Concomitant]
  6. ONE-ALPHA (ALFACALCIDOL) [Concomitant]
  7. DEPAS (ETIZOLAM) [Concomitant]
  8. ITRACONAZOLE [Concomitant]
  9. FAMOTIDINE [Concomitant]
  10. SULFAMETHOXAZOLE AND TRIMETHOPRIM [Concomitant]
  11. NORVASC [Concomitant]
  12. ASPARA K (ASPARTATE POTASSIUM) [Concomitant]
  13. ASPARA-CA (ASPARTATE CALCIUM) [Concomitant]
  14. MARZULENE S (LEVOGLUTAMIDE, SODIUM GUALENATE) [Concomitant]
  15. JUVELA NICOTINATE (TOCOPHERYL NICOTINATE) [Concomitant]
  16. VITAMEDIN CAPSULE (PYRIDOXINE HYDROCHLORIDE, CYANOCOBALAMIN, BENFOTIAM [Concomitant]
  17. MAGNESIUM OXIDE (MAGNESIUM OXIDE) [Concomitant]

REACTIONS (10)
  - ABNORMAL BEHAVIOUR [None]
  - ALTERED STATE OF CONSCIOUSNESS [None]
  - BLOOD CHLORIDE DECREASED [None]
  - CONSTIPATION [None]
  - EXPRESSIVE LANGUAGE DISORDER [None]
  - HERPES ZOSTER [None]
  - INAPPROPRIATE ANTIDIURETIC HORMONE SECRETION [None]
  - INCOHERENT [None]
  - MUSCULOSKELETAL DISORDER [None]
  - UNRESPONSIVE TO STIMULI [None]
